FAERS Safety Report 9335489 (Version 1)
Quarter: 2013Q2

REPORT INFORMATION
  Report Type: Spontaneous
  Country: US (occurrence: US)
  Receive Date: 20130605
  Receipt Date: 20130605
  Transmission Date: 20140414
  Serious: No
  Sender: FDA-Public Use
  Company Number: US-PFIZER INC-2012019087

PATIENT
  Age: 50 Year
  Sex: Male
  Weight: 104 kg

DRUGS (2)
  1. ZOLOFT [Suspect]
     Indication: DEPRESSION
     Dosage: 200 MG (TWO PILLS OF 100MG), DAILY
  2. LIDODERM [Concomitant]
     Indication: SPINAL FRACTURE
     Dosage: UNK, DAILY

REACTIONS (2)
  - Pharyngeal disorder [Recovered/Resolved]
  - Speech disorder [Unknown]
